FAERS Safety Report 11789257 (Version 1)
Quarter: 2015Q4

REPORT INFORMATION
  Report Type: Spontaneous
  Country: US (occurrence: None)
  Receive Date: 20151201
  Receipt Date: 20151201
  Transmission Date: 20160305
  Serious: Yes (Other)
  Sender: FDA-Public Use
  Company Number: US-MDT-ADR-2015-02255

PATIENT
  Age: 64 Year
  Sex: Female

DRUGS (2)
  1. HYDROMORPHONE INTRATHECAL - 1 MG/ML [Suspect]
     Active Substance: HYDROMORPHONE
     Dosage: 0.25 MG/DAY
  2. COMPOUNDED BACLOFEN INTRATHECAL - 150 MCG/ML [Suspect]
     Active Substance: BACLOFEN
     Dosage: 37.5 MCG/DAY

REACTIONS (2)
  - Medical device complication [None]
  - Drug withdrawal syndrome [None]
